FAERS Safety Report 4504133-0 (Version None)
Quarter: 2004Q4

REPORT INFORMATION
  Report Type: 
  Country: None (occurrence: None)
  Receive Date: 20041115
  Receipt Date: 20041104
  Transmission Date: 20050328
  Serious: Yes (Death)
  Sender: FDA-Public Use
  Company Number: 2004-11-0448

PATIENT
  Age: 69 Year
  Sex: Male

DRUGS (1)
  1. TEMODAR [Suspect]
     Indication: MALIGNANT MELANOMA
     Dosage: SEE IMAGE
     Route: 048

REACTIONS (1)
  - DEATH [None]
